FAERS Safety Report 20540792 (Version 1)
Quarter: 2022Q1

REPORT INFORMATION
  Report Type: Spontaneous
  Country: GB (occurrence: GB)
  Receive Date: 20220302
  Receipt Date: 20220302
  Transmission Date: 20220423
  Serious: Yes (Other)
  Sender: FDA-Public Use
  Company Number: None

PATIENT
  Age: 55 Year
  Sex: Female
  Weight: 57 kg

DRUGS (8)
  1. INFLIXIMAB [Suspect]
     Active Substance: INFLIXIMAB
     Indication: Colitis ulcerative
     Dosage: NOT KNOWN
     Route: 042
     Dates: start: 20210802, end: 20210816
  2. INFLIXIMAB [Suspect]
     Active Substance: INFLIXIMAB
     Indication: Colitis ulcerative
     Route: 042
     Dates: start: 20210802, end: 20210816
  3. COLECALCIFEROL D3 [Concomitant]
     Indication: Ill-defined disorder
     Route: 065
  4. ASACOL [Concomitant]
     Active Substance: MESALAMINE
     Indication: Ill-defined disorder
     Route: 065
  5. AZATHIOPRINE [Concomitant]
     Active Substance: AZATHIOPRINE
     Indication: Ill-defined disorder
     Route: 065
  6. BECLOMETHASONE DIPROPIONATE [Concomitant]
     Active Substance: BECLOMETHASONE DIPROPIONATE
     Indication: Ill-defined disorder
     Route: 065
  7. PREDNISOLONE [Concomitant]
     Active Substance: PREDNISOLONE
     Indication: Ill-defined disorder
     Route: 065
  8. ALBUTEROL [Concomitant]
     Active Substance: ALBUTEROL
     Indication: Ill-defined disorder
     Route: 065

REACTIONS (28)
  - Hallucination, visual [Recovered/Resolved]
  - Taste disorder [Recovered/Resolved]
  - Feeding disorder [Recovered/Resolved]
  - Dry mouth [Recovered/Resolved]
  - Mouth ulceration [Recovered/Resolved]
  - Tongue injury [Recovered/Resolved]
  - Vision blurred [Recovered/Resolved]
  - Tremor [Recovered/Resolved]
  - Skin discolouration [Recovered/Resolved]
  - Confusional state [Recovered/Resolved]
  - Migraine with aura [Recovered/Resolved]
  - Hypersomnia [Unknown]
  - Cognitive disorder [Unknown]
  - Visual impairment [Unknown]
  - Cough [Recovered/Resolved]
  - Chest pain [Recovered/Resolved]
  - Palpitations [Recovered/Resolved]
  - Vomiting [Recovered/Resolved]
  - Alopecia [Recovered/Resolved]
  - Pain in extremity [Recovered/Resolved with Sequelae]
  - Dyspnoea [Recovered/Resolved]
  - Feeling hot [Recovered/Resolved]
  - Cold sweat [Recovered/Resolved]
  - Back pain [Recovered/Resolved]
  - Nausea [Recovered/Resolved]
  - Fatigue [Recovered/Resolved]
  - Headache [Recovered/Resolved]
  - Dizziness [Recovered/Resolved]

NARRATIVE: CASE EVENT DATE: 20210802
